FAERS Safety Report 10607630 (Version 2)
Quarter: 2014Q4

REPORT INFORMATION
  Report Type: Spontaneous
  Country: PL (occurrence: PL)
  Receive Date: 20141125
  Receipt Date: 20141125
  Transmission Date: 20150529
  Serious: Yes (Hospitalization)
  Sender: FDA-Public Use
  Company Number: PL-PFIZER INC-2014270998

PATIENT
  Age: 67 Year
  Sex: Male

DRUGS (12)
  1. SULFASALAZINE. [Suspect]
     Active Substance: SULFASALAZINE
  2. ENBREL [Suspect]
     Active Substance: ETANERCEPT
     Indication: ANKYLOSING SPONDYLITIS
     Dosage: 50 MG, 1X/ WEEKLY
     Route: 058
     Dates: start: 20100507, end: 20140626
  3. ENBREL [Suspect]
     Active Substance: ETANERCEPT
     Dosage: UNK
  4. ENBREL [Suspect]
     Active Substance: ETANERCEPT
     Dosage: UNK
  5. APO-NAPRO [Concomitant]
     Dosage: 250 MG, 2X/DAY
     Dates: start: 20140206
  6. PRESTARIUM [Concomitant]
     Active Substance: PERINDOPRIL
     Dosage: 5 MG, DAILY
     Dates: start: 2012
  7. ENBREL [Suspect]
     Active Substance: ETANERCEPT
     Dosage: UNK
  8. ENBREL [Suspect]
     Active Substance: ETANERCEPT
     Dosage: UNK
  9. POLPRAZOL [Concomitant]
     Active Substance: OMEPRAZOLE
     Dosage: 20 MG, DAILY
     Dates: start: 2013
  10. ENBREL [Suspect]
     Active Substance: ETANERCEPT
     Dosage: UNK
  11. ENBREL [Suspect]
     Active Substance: ETANERCEPT
     Dosage: UNK
  12. ENBREL [Suspect]
     Active Substance: ETANERCEPT
     Dosage: UNK

REACTIONS (1)
  - Skin cancer [Recovered/Resolved]

NARRATIVE: CASE EVENT DATE: 201401
